FAERS Safety Report 25276130 (Version 1)
Quarter: 2025Q2

REPORT INFORMATION
  Report Type: Spontaneous
  Country: FR (occurrence: FR)
  Receive Date: 20250507
  Receipt Date: 20250507
  Transmission Date: 20250716
  Serious: Yes (Other)
  Sender: CHEPLAPHARM
  Company Number: None

PATIENT
  Age: 21 Year
  Sex: Male

DRUGS (3)
  1. CLONAZEPAM [Suspect]
     Active Substance: CLONAZEPAM
  2. PREGABALIN [Suspect]
     Active Substance: PREGABALIN
  3. MIDOMAFETAMINE [Suspect]
     Active Substance: MIDOMAFETAMINE

REACTIONS (4)
  - Drug use disorder [Unknown]
  - Vertigo [Recovered/Resolved]
  - Hypertension [Unknown]
  - Asthenia [Recovered/Resolved]

NARRATIVE: CASE EVENT DATE: 20241130
